FAERS Safety Report 10044719 (Version 1)
Quarter: 2014Q1

REPORT INFORMATION
  Report Type: Spontaneous
  Country: SZ (occurrence: None)
  Receive Date: 20140326
  Receipt Date: 20140326
  Transmission Date: 20141002
  Serious: Yes (Hospitalization)
  Sender: FDA-Public Use
  Company Number: 20140147

PATIENT
  Age: 86 Year
  Sex: Female

DRUGS (4)
  1. VENOFER (IRON SUCROSE INJECTION-VIFOR) (IRON SUROSE INJECTION) 20 MG/ML ? [Suspect]
     Indication: ANAEMIA
     Dosage: 200 MG (1 IN 1 DAY), INTRAVENOUS DRIP?
     Route: 041
     Dates: start: 20130523, end: 20130523
  2. PARACETAMOL [Suspect]
     Indication: PAIN
     Dosage: 4 GM (1 IN 1 DAY), INTRAVENOUS
     Route: 042
     Dates: start: 20130523, end: 20130527
  3. CELEXANE (ENOXAPARIN SODIUM), 4000 IU [Concomitant]
  4. PANTOPRAZOLE, 40 MG [Concomitant]

REACTIONS (1)
  - Hepatitis [None]
